FAERS Safety Report 4523607-X (Version None)
Quarter: 2004Q4

REPORT INFORMATION
  Report Type: 
  Country: None (occurrence: None)
  Receive Date: 20041210
  Receipt Date: 20041206
  Transmission Date: 20050328
  Serious: Yes (Death, Other)
  Sender: FDA-Public Use
  Company Number: PHBS2004HK16429

PATIENT
  Age: 53 Year
  Sex: Male

DRUGS (7)
  1. METHOTREXATE [Concomitant]
  2. IMURAN [Concomitant]
  3. STEROIDS NOS [Concomitant]
  4. BUSULFAN [Concomitant]
  5. CYCLOPHOSPHAMIDE [Concomitant]
  6. IRRADIATION [Concomitant]
  7. CYCLOSPORINE [Suspect]
     Indication: STEM CELL TRANSPLANT

REACTIONS (4)
  - GRAFT VERSUS HOST DISEASE [None]
  - SURGERY [None]
  - TONGUE NEOPLASM [None]
  - TONGUE NEOPLASM MALIGNANT STAGE UNSPECIFIED [None]
